FAERS Safety Report 8815126 (Version 3)
Quarter: 2013Q3

REPORT INFORMATION
  Report Type: Report from Study
  Country: JP (occurrence: JP)
  Receive Date: 20120928
  Receipt Date: 20130716
  Transmission Date: 20140515
  Serious: Yes (Life-Threatening, Other)
  Sender: FDA-Public Use
  Company Number: JP-VERTEX PHARMACEUTICAL INC.-AE-2012-011825

PATIENT
  Age: 64 Year
  Sex: Male

DRUGS (10)
  1. VX-950 (TELAPREVIR) [Suspect]
     Indication: CHRONIC HEPATITIS C
     Dosage: 1500 MG, QD
     Route: 048
     Dates: start: 20120612, end: 20120706
  2. RIBAVIRIN [Suspect]
     Indication: CHRONIC HEPATITIS C
     Dosage: 600 MG, QD
     Route: 048
     Dates: start: 20120612, end: 20120706
  3. PEGINTERFERON ALFA-2B [Suspect]
     Indication: CHRONIC HEPATITIS C
     Dosage: 1.4 ?G, QW
     Route: 058
     Dates: start: 20120612, end: 20120706
  4. TAKEPRON [Concomitant]
     Dosage: 15 MG, QD
     Route: 048
     Dates: end: 20120722
  5. TSUMURA JUZENTAIHOTO EXTRACT GRANULES FOR ETHICAL USE [Concomitant]
     Dosage: 7.5 MG, QD
     Route: 048
     Dates: end: 20120706
  6. CELECOX [Concomitant]
     Dosage: 100 MG, QD
     Route: 048
     Dates: end: 20120706
  7. ALDACTONE A [Concomitant]
     Dosage: 25 MG, QD
     Route: 048
  8. BUFFERIN [Concomitant]
     Dosage: 1 DF, QD
     Route: 048
     Dates: end: 20120722
  9. DIART [Concomitant]
     Dosage: 30 MG, QD
     Route: 048
     Dates: end: 20120706
  10. PROMAC [Concomitant]
     Dosage: 150 MG, QD
     Route: 048
     Dates: end: 20120706

REACTIONS (3)
  - Liver disorder [Recovered/Resolved]
  - Renal disorder [Recovered/Resolved]
  - Hepatic cancer recurrent [Recovered/Resolved]
